FAERS Safety Report 9790195 (Version 2)
Quarter: 2014Q1

REPORT INFORMATION
  Report Type: Report from Study
  Country: US (occurrence: US)
  Receive Date: 20131231
  Receipt Date: 20140120
  Transmission Date: 20141002
  Serious: Yes (Hospitalization)
  Sender: FDA-Public Use
  Company Number: US-ELI_LILLY_AND_COMPANY-US201312007700

PATIENT
  Age: 40 Year
  Sex: Male
  Weight: 62.59 kg

DRUGS (4)
  1. OLANZAPINE LONG-ACTING IM [Suspect]
     Indication: SCHIZOPHRENIA
     Dosage: 405 MG, MONTHLY (1/M)
     Route: 030
     Dates: start: 20131001
  2. ZYPREXA [Suspect]
     Indication: SCHIZOPHRENIA
     Dosage: 40 MG, UNK
  3. TOPIRAMATE [Concomitant]
  4. COGENTIN [Concomitant]

REACTIONS (6)
  - Dizziness [Unknown]
  - Panic attack [Unknown]
  - Palpitations [Unknown]
  - Paraesthesia [Unknown]
  - Sedation [Unknown]
  - Overdose [Not Recovered/Not Resolved]
